FAERS Safety Report 24378989 (Version 1)
Quarter: 2024Q3

REPORT INFORMATION
  Report Type: Report from Study
  Country: US (occurrence: US)
  Receive Date: 20240930
  Receipt Date: 20240930
  Transmission Date: 20241017
  Serious: Yes (Hospitalization, Other)
  Sender: NOVARTIS
  Company Number: US-002147023-NVSC2024US008022

PATIENT
  Sex: Female
  Weight: 12.9 kg

DRUGS (4)
  1. ILARIS [Suspect]
     Active Substance: CANAKINUMAB
     Indication: Juvenile idiopathic arthritis
     Dosage: 45 MG, QMO
     Route: 058
     Dates: start: 20230630
  2. ILARIS [Suspect]
     Active Substance: CANAKINUMAB
     Dosage: 60 MG, QMO
     Route: 058
  3. ILARIS [Suspect]
     Active Substance: CANAKINUMAB
     Dosage: 60 MG EVERY 28 DAYS
     Route: 058
  4. SUPRAX [Concomitant]
     Active Substance: CEFIXIME
     Indication: Product used for unknown indication
     Dosage: 50 MG, Q12H FOR 11 DAYS
     Route: 048

REACTIONS (4)
  - Pyrexia [Recovering/Resolving]
  - Still^s disease [Unknown]
  - Pneumonia [Unknown]
  - Pyelonephritis [Unknown]
